FAERS Safety Report 14502833 (Version 1)
Quarter: 2018Q1

REPORT INFORMATION
  Report Type: Spontaneous
  Country: US (occurrence: US)
  Receive Date: 20180206
  Receipt Date: 20180206
  Transmission Date: 20180509
  Serious: No
  Sender: FDA-Public Use
  Company Number: None

PATIENT
  Age: 68 Year
  Sex: Male
  Weight: 58.3 kg

DRUGS (2)
  1. BUPRENORPHINE/NALOXONE [Suspect]
     Active Substance: BUPRENORPHINE\NALOXONE
     Route: 048
  2. BUPRENORPHINE/NALOXONE [Suspect]
     Active Substance: BUPRENORPHINE\NALOXONE
     Indication: SUBSTANCE ABUSE
     Route: 048
     Dates: start: 20160801

REACTIONS (7)
  - Hot flush [None]
  - Insomnia [None]
  - Product substitution issue [None]
  - Dizziness [None]
  - Decreased appetite [None]
  - Drug effect decreased [None]
  - Intentional product use issue [None]

NARRATIVE: CASE EVENT DATE: 20161110
